FAERS Safety Report 25968857 (Version 1)
Quarter: 2025Q4

REPORT INFORMATION
  Report Type: Spontaneous
  Country: US (occurrence: None)
  Receive Date: 20251027
  Receipt Date: 20251027
  Transmission Date: 20260118
  Serious: Yes (Other)
  Sender: FDA-CTU
  Company Number: None

PATIENT
  Age: 74 Year
  Sex: Female
  Weight: 64.41 kg

DRUGS (8)
  1. SPRYCEL [Suspect]
     Active Substance: DASATINIB
     Indication: Myeloid leukaemia
     Dosage: FREQUENCY : DAILY;?
     Route: 048
     Dates: start: 20251014, end: 20251018
  2. METFORMIN HYDROCHLORIDE [Concomitant]
     Active Substance: METFORMIN HYDROCHLORIDE
  3. ATORVASTATIN [Concomitant]
     Active Substance: ATORVASTATIN
  4. FISH OIL 1000MG [Concomitant]
  5. VITAMIN C 500MG [Concomitant]
  6. NITAMIN D 400IU [Concomitant]
  7. LORATIDINE 10MG [Concomitant]
  8. DICLOFENAC 50MG DR [Concomitant]

REACTIONS (6)
  - Pruritus [None]
  - Pruritus [None]
  - Peripheral swelling [None]
  - Peripheral swelling [None]
  - Gait disturbance [None]
  - Therapy cessation [None]

NARRATIVE: CASE EVENT DATE: 20251018
